FAERS Safety Report 18560977 (Version 1)
Quarter: 2020Q4

REPORT INFORMATION
  Report Type: Spontaneous
  Country: DE (occurrence: DE)
  Receive Date: 20201130
  Receipt Date: 20201130
  Transmission Date: 20210114
  Serious: Yes (Other)
  Sender: FDA-Public Use
  Company Number: DE-GILEAD-2020-0506269

PATIENT
  Sex: Male
  Weight: 80 kg

DRUGS (2)
  1. VEKLURY [Suspect]
     Active Substance: REMDESIVIR
     Indication: COVID-19 PNEUMONIA
  2. VEKLURY [Suspect]
     Active Substance: REMDESIVIR
     Indication: PNEUMONIA VIRAL
     Dosage: 100 MG, QD
     Route: 042
     Dates: start: 20201024, end: 20201029

REACTIONS (1)
  - Atrioventricular block complete [Recovered/Resolved]

NARRATIVE: CASE EVENT DATE: 20201113
